FAERS Safety Report 25021607 (Version 1)
Quarter: 2025Q1

REPORT INFORMATION
  Report Type: Spontaneous
  Country: ES (occurrence: ES)
  Receive Date: 20250228
  Receipt Date: 20250228
  Transmission Date: 20250408
  Serious: Yes (Other)
  Sender: CATALYST PHARMA
  Company Number: ES-CATALYSTPHARMACEUTICALPARTNERS-ES-CATA-25-00277

PATIENT
  Age: 59 Year
  Sex: Female

DRUGS (3)
  1. FYCOMPA [Suspect]
     Active Substance: PERAMPANEL
     Indication: Epilepsy
     Dosage: 1 TABLET OF 2, 4, 6 AND 8 MG AT NIGHT
     Route: 048
     Dates: start: 20241202, end: 202501
  2. FYCOMPA [Suspect]
     Active Substance: PERAMPANEL
     Route: 048
     Dates: start: 202501, end: 202502
  3. VALPROATE SODIUM [Concomitant]
     Active Substance: VALPROATE SODIUM
     Indication: Product used for unknown indication
     Dosage: 1300, 1000, 800 AT BREAKFAST
     Route: 065

REACTIONS (4)
  - Bradyphrenia [Recovering/Resolving]
  - Increased appetite [Recovering/Resolving]
  - Affect lability [Recovering/Resolving]
  - Somnolence [Recovering/Resolving]

NARRATIVE: CASE EVENT DATE: 20241208
